FAERS Safety Report 17523800 (Version 1)
Quarter: 2020Q1

REPORT INFORMATION
  Report Type: Spontaneous
  Country: GB (occurrence: GB)
  Receive Date: 20200310
  Receipt Date: 20200310
  Transmission Date: 20200409
  Serious: Yes (Other)
  Sender: FDA-Public Use
  Company Number: GB-MYLANLABS-2020M1025569

PATIENT
  Age: 75 Year
  Sex: Female
  Weight: 70 kg

DRUGS (12)
  1. AMITRIPTYLINE HYDROCHLORIDE. [Concomitant]
     Active Substance: AMITRIPTYLINE HYDROCHLORIDE
     Dosage: AT NIGHT
     Dates: start: 20191022
  2. DICLOFENAC DIETHYLAMINE [Concomitant]
     Active Substance: DICLOFENAC DIETHYLAMINE
     Dosage: TWICE DAILY
     Dates: start: 20200102, end: 20200109
  3. DOXAZOSIN [Concomitant]
     Active Substance: DOXAZOSIN MESYLATE
     Dosage: 1 DOSAGE FORM, QD
     Dates: start: 20191223, end: 20200120
  4. ATORVASTATIN [Concomitant]
     Active Substance: ATORVASTATIN
     Dosage: AT NIGHT
     Dates: start: 20191022
  5. RAMIPRIL. [Concomitant]
     Active Substance: RAMIPRIL
     Dosage: 1 DOSAGE FORM, QD
     Dates: start: 20191022
  6. COCODAMOL [Concomitant]
     Active Substance: ACETAMINOPHEN\CODEINE PHOSPHATE
     Dosage: 2 AS NEEDED, MAX 2 FOUR TIMES A DAY
     Dates: start: 20191119, end: 20191120
  7. CORACTEN [Concomitant]
     Active Substance: NIFEDIPINE
     Dosage: 2 DOSAGE FORM, QD
     Dates: start: 20200110
  8. ANUSOL                             /08601001/ [Concomitant]
     Dosage: UNK UNK, PRN (APPLY)
     Dates: start: 20200115, end: 20200122
  9. BISOPROLOL [Suspect]
     Active Substance: BISOPROLOL
     Indication: PRODUCT USED FOR UNKNOWN INDICATION
     Dosage: 2.5 MILLIGRAM, QD
     Dates: start: 20191022
  10. ESOMEPRAZOLE. [Concomitant]
     Active Substance: ESOMEPRAZOLE MAGNESIUM
     Dosage: 1 DOSAGE FORM, QD
     Dates: start: 20191022
  11. LACTULOSE. [Concomitant]
     Active Substance: LACTULOSE
     Dosage: 15 MILLILITER, PRN (TWICE DAILY)
     Dates: start: 20200102, end: 20200112
  12. HYLO TEAR [Concomitant]
     Dosage: 2 DROPS BOTH EYES
     Dates: start: 20191022

REACTIONS (5)
  - Fatigue [Not Recovered/Not Resolved]
  - Lethargy [Unknown]
  - Myalgia [Unknown]
  - Nausea [Unknown]
  - Feeling cold [Unknown]
